FAERS Safety Report 19129213 (Version 2)
Quarter: 2021Q2

REPORT INFORMATION
  Report Type: Spontaneous
  Country: CN (occurrence: CN)
  Receive Date: 20210413
  Receipt Date: 20210421
  Transmission Date: 20210717
  Serious: Yes (Death)
  Sender: FDA-Public Use
  Company Number: CN-NOVOPROD-802435

PATIENT
  Age: 40 Year
  Sex: Female
  Weight: 58.6 kg

DRUGS (2)
  1. NOVOMIX 30 PENFILL [Suspect]
     Active Substance: INSULIN ASPART
     Indication: PRODUCT USED FOR UNKNOWN INDICATION
     Dosage: TWO INJECTIONS WITH 70 IU, 4?5 HOURS LATER, 4 INJECTIONS WERE INJECTED WITH 140 IU.INJECTED WITH 210
     Route: 065
  2. ESTAZOLAM. [Concomitant]
     Active Substance: ESTAZOLAM
     Indication: PRODUCT USED FOR UNKNOWN INDICATION
     Dosage: UNK (CONCENTRATION VALUE WAS IN THERAPY ARRANGE)
     Route: 065

REACTIONS (2)
  - Intentional product misuse [Fatal]
  - Encephalopathy [Fatal]
